APPROVED DRUG PRODUCT: CAPECITABINE
Active Ingredient: CAPECITABINE
Strength: 150MG
Dosage Form/Route: TABLET;ORAL
Application: A204345 | Product #001 | TE Code: AB
Applicant: DR REDDYS LABORATORIES LTD
Approved: Dec 4, 2020 | RLD: No | RS: No | Type: RX